APPROVED DRUG PRODUCT: NIMODIPINE
Active Ingredient: NIMODIPINE
Strength: 30MG
Dosage Form/Route: CAPSULE;ORAL
Application: A076740 | Product #001 | TE Code: AB
Applicant: BIONPHARMA INC
Approved: Jan 17, 2008 | RLD: No | RS: Yes | Type: RX